FAERS Safety Report 7029082-8 (Version None)
Quarter: 2010Q4

REPORT INFORMATION
  Report Type: 
  Country: None (occurrence: None)
  Receive Date: 20101005
  Receipt Date: 20100925
  Transmission Date: 20110411
  Serious: Yes (Other)
  Sender: FDA-Public Use
  Company Number: B0676685A

PATIENT
  Age: 64 Year
  Sex: Female
  Weight: 75 kg

DRUGS (10)
  1. AVANDAMET [Suspect]
     Dosage: 2MG TWICE PER DAY
     Route: 048
     Dates: start: 20040101
  2. TAHOR [Concomitant]
     Indication: HYPERTENSIVE HEART DISEASE
  3. KARDEGIC [Concomitant]
     Indication: HYPERTENSIVE HEART DISEASE
  4. TRIATEC [Concomitant]
     Indication: HYPERTENSIVE HEART DISEASE
  5. LOXEN [Concomitant]
     Indication: HYPERTENSIVE HEART DISEASE
  6. METOPROLOL TARTRATE [Concomitant]
     Indication: HYPERTENSIVE HEART DISEASE
  7. EURELIX [Concomitant]
     Indication: HYPERTENSIVE HEART DISEASE
  8. LEVOTHYROXINE SODIUM [Concomitant]
     Dates: start: 20090101
  9. ALLOPURINOL [Concomitant]
     Dates: start: 20090101
  10. HEXAQUINE [Concomitant]

REACTIONS (1)
  - ANGINA PECTORIS [None]
